FAERS Safety Report 25893566 (Version 1)
Quarter: 2025Q4

REPORT INFORMATION
  Report Type: Spontaneous
  Country: US (occurrence: US)
  Receive Date: 20251008
  Receipt Date: 20251008
  Transmission Date: 20260117
  Serious: Yes (Hospitalization, Other)
  Sender: AUROBINDO
  Company Number: US-MLMSERVICE-20250919-PI651226-00101-1

PATIENT
  Age: 67 Year
  Sex: Female

DRUGS (7)
  1. CYCLOPHOSPHAMIDE [Suspect]
     Active Substance: CYCLOPHOSPHAMIDE
     Indication: Triple negative breast cancer
     Dosage: SEVERAL CYCLES OF CHEMOTHERAPY WITH THE LAST DOSE RECEIVED 3 MONTHS PRIOR TO THIS PRESENTATION
     Route: 065
  2. CISPLATIN [Suspect]
     Active Substance: CISPLATIN
     Indication: Triple negative breast cancer
     Dosage: SEVERAL CYCLES OF CHEMOTHERAPY WITH THE LAST DOSE RECEIVED 3 MONTHS PRIOR TO THIS PRESENTATION
     Route: 065
  3. ADRIAMYCIN [Suspect]
     Active Substance: DOXORUBICIN HYDROCHLORIDE
     Indication: Triple negative breast cancer
     Dosage: UNK
     Route: 065
  4. PACLITAXEL [Suspect]
     Active Substance: PACLITAXEL
     Indication: Triple negative breast cancer
     Dosage: SEVERAL CYCLES OF CHEMOTHERAPY WITH THE LAST DOSE RECEIVED 3 MONTHS PRIOR TO THIS PRESENTATION
     Route: 065
  5. PEMBROLIZUMAB [Suspect]
     Active Substance: PEMBROLIZUMAB
     Indication: Triple negative breast cancer
     Dosage: SEVERAL CYCLES OF CHEMOTHERAPY WITH THE LAST DOSE RECEIVED 3 MONTHS PRIOR TO THIS PRESENTATION
     Route: 065
  6. MAGNESIUM SULFATE [Concomitant]
     Active Substance: MAGNESIUM SULFATE
     Indication: Hypomagnesaemia
     Dosage: 4 GRAM
     Route: 042
  7. MAGNESIUM OXIDE [Concomitant]
     Active Substance: MAGNESIUM OXIDE
     Indication: Hypomagnesaemia
     Dosage: 800 MILLIGRAM, TWO TIMES A DAY
     Route: 048

REACTIONS (5)
  - Febrile neutropenia [Unknown]
  - Pancytopenia [Unknown]
  - Cytomegalovirus viraemia [Unknown]
  - Systemic candida [Unknown]
  - COVID-19 [Unknown]
